FAERS Safety Report 15819492 (Version 1)
Quarter: 2019Q1

REPORT INFORMATION
  Report Type: Spontaneous
  Country: DE (occurrence: DE)
  Receive Date: 20190114
  Receipt Date: 20190114
  Transmission Date: 20190417
  Serious: Yes (Other)
  Sender: FDA-Public Use
  Company Number: DE-AMGEN-DEUSP2019003007

PATIENT
  Age: 83 Year
  Sex: Female

DRUGS (1)
  1. PROLIA [Suspect]
     Active Substance: DENOSUMAB
     Indication: OSTEOPOROSIS
     Dosage: UNK, Q6MO
     Route: 065

REACTIONS (4)
  - Fall [Unknown]
  - Rib fracture [Unknown]
  - Pelvic fracture [Unknown]
  - Forearm fracture [Unknown]

NARRATIVE: CASE EVENT DATE: 2018
